FAERS Safety Report 19535763 (Version 1)
Quarter: 2021Q3

REPORT INFORMATION
  Report Type: Spontaneous
  Country: US (occurrence: US)
  Receive Date: 20210713
  Receipt Date: 20210713
  Transmission Date: 20211014
  Serious: Yes (Other)
  Sender: FDA-Public Use
  Company Number: None

PATIENT
  Age: 34 Year
  Sex: Female
  Weight: 49.5 kg

DRUGS (2)
  1. SELENIUM [Concomitant]
     Active Substance: SELENIUM
  2. TEPEZZA [Suspect]
     Active Substance: TEPROTUMUMAB-TRBW
     Indication: ENDOCRINE OPHTHALMOPATHY
     Dates: start: 20201211, end: 20210122

REACTIONS (8)
  - Anaemia [None]
  - Hypoacusis [None]
  - Fat tissue decreased [None]
  - Impaired gastric emptying [None]
  - Gastritis [None]
  - Condition aggravated [None]
  - Quality of life decreased [None]
  - Lid sulcus deepened [None]

NARRATIVE: CASE EVENT DATE: 20201211
